FAERS Safety Report 7641044-6 (Version None)
Quarter: 2011Q3

REPORT INFORMATION
  Report Type: 
  Country: None (occurrence: None)
  Receive Date: 20110728
  Receipt Date: 20110719
  Transmission Date: 20111222
  Serious: Yes (Other)
  Sender: FDA-Public Use
  Company Number: BR-ASTELLAS-2011US004292

PATIENT
  Sex: Female
  Weight: 71 kg

DRUGS (11)
  1. SORAFENIB [Suspect]
     Indication: HEPATIC NEOPLASM MALIGNANT
     Dosage: 400 MG, BID
     Route: 048
     Dates: start: 20100419, end: 20100509
  2. ERLOTINIB HYDROCHLORIDE [Suspect]
     Indication: HEPATIC NEOPLASM MALIGNANT
     Dosage: 300 MG, UID/QD
     Route: 048
     Dates: start: 20100419, end: 20100428
  3. SORAFENIB [Suspect]
     Dosage: 400 MG, BID
     Route: 048
     Dates: start: 20100510, end: 20110329
  4. SORAFENIB [Suspect]
     Dosage: 400 MG, UID/QD
     Route: 048
     Dates: start: 20110605, end: 20110605
  5. SORAFENIB [Suspect]
     Dosage: 400 MG, UID/QD
     Route: 048
     Dates: start: 20110413, end: 20110413
  6. ERLOTINIB HYDROCHLORIDE [Suspect]
     Dosage: 100 MG, UID/QD
     Route: 048
     Dates: start: 20110414, end: 20110605
  7. SORAFENIB [Suspect]
     Dosage: 400 MG, UID/QD
     Route: 048
     Dates: start: 20110504, end: 20110524
  8. ERLOTINIB HYDROCHLORIDE [Suspect]
     Dosage: 150 MG, UID/QD
     Route: 048
     Dates: start: 20100429, end: 20110331
  9. SORAFENIB [Suspect]
     Dosage: 400 MG, BID
     Route: 048
     Dates: start: 20110414, end: 20110503
  10. SORAFENIB [Suspect]
     Dosage: 400 MG, UID/QD
     Route: 048
     Dates: start: 20110330, end: 20110330
  11. SORAFENIB [Suspect]
     Dosage: 400 MG, BID
     Route: 048
     Dates: start: 20110525, end: 20110604

REACTIONS (1)
  - OVERDOSE [None]
